FAERS Safety Report 11740332 (Version 2)
Quarter: 2015Q4

REPORT INFORMATION
  Report Type: Spontaneous
  Country: US (occurrence: US)
  Receive Date: 20151110
  Receipt Date: 20151120
  Transmission Date: 20160304
  Serious: No
  Sender: FDA-Public Use
  Company Number: US-ELI_LILLY_AND_COMPANY-US201204001264

PATIENT
  Sex: Female

DRUGS (4)
  1. FORTEO [Suspect]
     Active Substance: TERIPARATIDE
     Indication: OSTEOPOROSIS
     Dosage: 20 UG, QD
     Dates: start: 20120303
  2. FORTEO [Suspect]
     Active Substance: TERIPARATIDE
     Dosage: 20 UG, QD
  3. FORTEO [Suspect]
     Active Substance: TERIPARATIDE
     Dosage: 20 UG, QD
     Dates: end: 201205
  4. FORTEO [Suspect]
     Active Substance: TERIPARATIDE
     Dosage: 20 UG, QD
     Dates: start: 201210

REACTIONS (10)
  - Arthralgia [Not Recovered/Not Resolved]
  - Eructation [Not Recovered/Not Resolved]
  - Drug administered at inappropriate site [Unknown]
  - Constipation [Not Recovered/Not Resolved]
  - Helicobacter infection [Recovered/Resolved]
  - Dysphonia [Not Recovered/Not Resolved]
  - Haemorrhage [Unknown]
  - Gastrointestinal disorder [Unknown]
  - Nausea [Not Recovered/Not Resolved]
  - Peripheral swelling [Unknown]
